FAERS Safety Report 7528332-9 (Version None)
Quarter: 2011Q2

REPORT INFORMATION
  Report Type: 
  Country: None (occurrence: None)
  Receive Date: 20110607
  Receipt Date: 20110301
  Transmission Date: 20111010
  Serious: No
  Sender: FDA-Public Use
  Company Number: US-ASTRAZENECA-2011SE11461

PATIENT
  Age: 72 Year
  Sex: Female

DRUGS (5)
  1. PRILOSEC [Suspect]
     Route: 048
  2. LIPITOR [Concomitant]
  3. TOPROL-XL [Concomitant]
  4. COUMADIN [Concomitant]
  5. PRILOSEC OTC [Suspect]
     Route: 048

REACTIONS (2)
  - ERUCTATION [None]
  - DRUG INEFFECTIVE [None]
